FAERS Safety Report 13913475 (Version 1)
Quarter: 2017Q3

REPORT INFORMATION
  Report Type: Spontaneous
  Country: US (occurrence: US)
  Receive Date: 20170829
  Receipt Date: 20170829
  Transmission Date: 20171127
  Serious: No
  Sender: FDA-Public Use
  Company Number: US-TEVA-769791ACC

PATIENT
  Age: 34 Year
  Sex: Female

DRUGS (9)
  1. HYDROMORPHONE HYDROCHLORIDE. [Suspect]
     Active Substance: HYDROMORPHONE HYDROCHLORIDE
     Indication: ABDOMINAL PAIN
     Dates: start: 20170105
  2. ANUSOL-HC [Concomitant]
  3. ONDANSETRON [Concomitant]
     Active Substance: ONDANSETRON
  4. ALPRAZOLAM XR [Concomitant]
     Active Substance: ALPRAZOLAM
  5. TOPIRAMATE. [Concomitant]
     Active Substance: TOPIRAMATE
  6. QUETIAPINE. [Concomitant]
     Active Substance: QUETIAPINE
  7. PANTOPRAZOLE [Concomitant]
     Active Substance: PANTOPRAZOLE
  8. LYRICA [Concomitant]
     Active Substance: PREGABALIN
  9. HYDROMORPHONE [Concomitant]
     Active Substance: HYDROMORPHONE

REACTIONS (1)
  - Medication residue present [Not Recovered/Not Resolved]

NARRATIVE: CASE EVENT DATE: 20170423
